FAERS Safety Report 25084301 (Version 2)
Quarter: 2025Q2

REPORT INFORMATION
  Report Type: Spontaneous
  Country: GB (occurrence: GB)
  Receive Date: 20250317
  Receipt Date: 20250402
  Transmission Date: 20250717
  Serious: No
  Sender: PFIZER
  Company Number: GB-PFIZER INC-202500051786

PATIENT
  Age: 7 Year
  Sex: Male

DRUGS (1)
  1. GENOTROPIN [Suspect]
     Active Substance: SOMATROPIN
     Route: 058

REACTIONS (1)
  - Device leakage [Unknown]
